FAERS Safety Report 21709083 (Version 2)
Quarter: 2023Q1

REPORT INFORMATION
  Report Type: Report from Study
  Country: US (occurrence: US)
  Receive Date: 20221210
  Receipt Date: 20230301
  Transmission Date: 20230418
  Serious: No
  Sender: FDA-Public Use
  Company Number: US-ABBVIE-22K-163-4534172-00

PATIENT
  Age: 67 Year
  Sex: Male

DRUGS (4)
  1. HUMIRA [Suspect]
     Active Substance: ADALIMUMAB
     Indication: Psoriasis
     Route: 058
  2. HUMIRA [Suspect]
     Active Substance: ADALIMUMAB
     Route: 058
     Dates: start: 20220107
  3. MODERNA COVID-19 VACCINE [Concomitant]
     Active Substance: ELASOMERAN
     Indication: COVID-19 immunisation
     Dosage: FIRST DOSE FREQUENCY ONE IN ONCE
     Route: 030
     Dates: start: 20210916, end: 20210916
  4. MODERNA COVID-19 VACCINE [Concomitant]
     Active Substance: ELASOMERAN
     Indication: COVID-19 immunisation
     Dosage: SECOND DOSE FREQUENCY ONE IN ONCE
     Route: 030
     Dates: start: 20211015, end: 20211015

REACTIONS (6)
  - Skin disorder [Not Recovered/Not Resolved]
  - Psoriasis [Recovering/Resolving]
  - Psoriasis [Recovered/Resolved]
  - COVID-19 [Unknown]
  - Psoriasis [Recovered/Resolved]
  - Therapeutic response shortened [Unknown]

NARRATIVE: CASE EVENT DATE: 20220701
